FAERS Safety Report 6894021-7 (Version None)
Quarter: 2010Q3

REPORT INFORMATION
  Report Type: 
  Country: None (occurrence: None)
  Receive Date: 20100802
  Receipt Date: 20100719
  Transmission Date: 20110219
  Serious: Yes (Hospitalization)
  Sender: FDA-Public Use
  Company Number: GB-SHIRE-SPV1-2010-01269

PATIENT

DRUGS (3)
  1. MIDON [Suspect]
     Indication: HYPOTENSION
     Dosage: 2 TABLETS DAILY (1 TABLET 2XDAILY)
     Route: 048
     Dates: start: 20100608, end: 20100609
  2. ASPIRIN [Concomitant]
     Dosage: T TABLET, 3X/DAY:TID
  3. CHOLESTEROL LOWERING DRUGS [Concomitant]

REACTIONS (3)
  - ASTHENIA [None]
  - HYPERTENSIVE CRISIS [None]
  - POLYURIA [None]
